FAERS Safety Report 18349356 (Version 1)
Quarter: 2020Q4

REPORT INFORMATION
  Report Type: Spontaneous
  Country: US (occurrence: US)
  Receive Date: 20201006
  Receipt Date: 20201006
  Transmission Date: 20210114
  Serious: No
  Sender: FDA-Public Use
  Company Number: US-ELI_LILLY_AND_COMPANY-US202010001472

PATIENT
  Age: 73 Year
  Sex: Male

DRUGS (2)
  1. ERBITUX [Suspect]
     Active Substance: CETUXIMAB
     Indication: PRODUCT USED FOR UNKNOWN INDICATION
     Dosage: 625 MG/M2, UNKNOWN
     Route: 065
     Dates: start: 20200915
  2. ERBITUX [Suspect]
     Active Substance: CETUXIMAB
     Dosage: 625 MG/M2, UNKNOWN
     Route: 065
     Dates: start: 20200915

REACTIONS (4)
  - Chills [Recovered/Resolved]
  - Tremor [Recovered/Resolved]
  - Back pain [Recovered/Resolved]
  - Pallor [Recovered/Resolved]

NARRATIVE: CASE EVENT DATE: 20200915
